FAERS Safety Report 25771542 (Version 1)
Quarter: 2025Q3

REPORT INFORMATION
  Report Type: Spontaneous
  Country: US (occurrence: US)
  Receive Date: 20250908
  Receipt Date: 20250908
  Transmission Date: 20251021
  Serious: No
  Sender: DOMPE FARMACEUTICI
  Company Number: US-FARMAPROD-202504-1411

PATIENT
  Sex: Female

DRUGS (3)
  1. OXERVATE [Suspect]
     Active Substance: CENEGERMIN-BKBJ
     Indication: Neurotrophic keratopathy
     Route: 047
     Dates: start: 20250401
  2. NORCA [Concomitant]
  3. LYRICA [Concomitant]
     Active Substance: PREGABALIN

REACTIONS (4)
  - Eye pain [Unknown]
  - Periorbital pain [Unknown]
  - Headache [Unknown]
  - Migraine [Unknown]
